FAERS Safety Report 6105449-7 (Version None)
Quarter: 2009Q1

REPORT INFORMATION
  Report Type: 
  Country: None (occurrence: None)
  Receive Date: 20090304
  Receipt Date: 20090217
  Transmission Date: 20090719
  Serious: Yes (Other)
  Sender: FDA-Public Use
  Company Number: SPI200900056

PATIENT

DRUGS (2)
  1. AMITIZA [Suspect]
     Dosage: 24 MCG, UNK, UNK
  2. UNKNOWN SEIZURE MEDICATIONS [Concomitant]

REACTIONS (1)
  - CONVULSION [None]
